FAERS Safety Report 4597674-1 (Version None)
Quarter: 2005Q1

REPORT INFORMATION
  Report Type: 
  Country: None (occurrence: None)
  Receive Date: 20050303
  Receipt Date: 20050224
  Transmission Date: 20050727
  Serious: Yes (Other)
  Sender: FDA-Public Use
  Company Number: US-JNJFOC-20050201430

PATIENT
  Age: 94 Year
  Sex: Female
  Weight: 49.9 kg

DRUGS (6)
  1. REMINYL [Suspect]
     Indication: DEMENTIA
     Route: 049
  2. AMARYL [Suspect]
     Indication: DRUG USE FOR UNKNOWN INDICATION
     Route: 049
  3. SEROQUEL [Concomitant]
     Indication: DEMENTIA
     Dosage: 50MG IN AM/150MG AT HS
  4. HALDOL [Concomitant]
     Indication: DRUG USE FOR UNKNOWN INDICATION
  5. CARDIZEM CD [Concomitant]
  6. SODIUM BICARBONATE [Concomitant]
     Dosage: 2 TABLETS DAILY (DOSE UNSPECIFIED)
     Route: 049

REACTIONS (2)
  - HYPOGLYCAEMIA [None]
  - MEDICATION ERROR [None]
